FAERS Safety Report 7179235-3 (Version None)
Quarter: 2010Q4

REPORT INFORMATION
  Report Type: 
  Country: None (occurrence: None)
  Receive Date: 20101208
  Receipt Date: 20101122
  Transmission Date: 20110411
  Serious: Yes (Hospitalization)
  Sender: FDA-Public Use
  Company Number: 2010004578

PATIENT
  Age: 73 Year
  Sex: Female

DRUGS (7)
  1. TARCEVA (ERLOTINIB) (TABLET) (ERLOTINIB) [Suspect]
     Indication: PANCREATIC CARCINOMA
     Dosage: (100 MG), ORAL
     Route: 048
     Dates: start: 20091113
  2. GEMZAR [Suspect]
     Indication: PANCREATIC CARCINOMA
  3. HYDROCODONE BITARTRATE [Concomitant]
  4. ULTRASE (PANCRELIPASE) [Concomitant]
  5. LASIX [Concomitant]
  6. GLIMEPIRIDE [Concomitant]
  7. PROTONIX [Concomitant]

REACTIONS (17)
  - ASCITES [None]
  - BILIARY DILATATION [None]
  - BLOOD ALKALINE PHOSPHATASE INCREASED [None]
  - CLOSTRIDIUM DIFFICILE COLITIS [None]
  - DECREASED APPETITE [None]
  - DIARRHOEA [None]
  - HAEMOGLOBIN DECREASED [None]
  - HYPOTENSION [None]
  - INFECTION [None]
  - INTESTINAL OBSTRUCTION [None]
  - LUNG NEOPLASM [None]
  - MALIGNANT NEOPLASM PROGRESSION [None]
  - MENTAL STATUS CHANGES [None]
  - NAUSEA [None]
  - PNEUMONIA [None]
  - PYREXIA [None]
  - VOMITING [None]
